FAERS Safety Report 23880301 (Version 2)
Quarter: 2024Q2

REPORT INFORMATION
  Report Type: Spontaneous
  Country: US (occurrence: US)
  Receive Date: 20240521
  Receipt Date: 20240619
  Transmission Date: 20240715
  Serious: No
  Sender: FDA-Public Use
  Company Number: US-Vifor (International) Inc.-VIT-2024-04067

PATIENT
  Age: 80 Year
  Sex: Male
  Weight: 87.5 kg

DRUGS (4)
  1. VELTASSA [Suspect]
     Active Substance: PATIROMER
     Indication: Hyperkalaemia
     Dosage: 8.4 GRAM EVERY OTHER DAY (ON MONDAY, WEDNESDAY, FRIDAY, SUNDAY) WITHOUT FOOD, 4 TIMES A WEEK
     Route: 048
     Dates: start: 20240425
  2. ELIQUIS [Concomitant]
     Active Substance: APIXABAN
  3. MIDODRINE [Concomitant]
     Active Substance: MIDODRINE
  4. TORSEMIDE [Concomitant]
     Active Substance: TORSEMIDE

REACTIONS (2)
  - Dizziness [Recovering/Resolving]
  - Off label use [Unknown]

NARRATIVE: CASE EVENT DATE: 20240425
